FAERS Safety Report 17388721 (Version 2)
Quarter: 2020Q1

REPORT INFORMATION
  Report Type: Spontaneous
  Country: JP (occurrence: JP)
  Receive Date: 20200206
  Receipt Date: 20200318
  Transmission Date: 20200409
  Serious: Yes (Death)
  Sender: FDA-Public Use
  Company Number: JP-AMGEN-JPNSP2020020465

PATIENT
  Age: 75 Year
  Sex: Female

DRUGS (2)
  1. ELCITONIN [Suspect]
     Active Substance: ELCATONIN
     Indication: HYPERCALCAEMIA
     Dosage: UNK
     Route: 065
  2. REGPARA [Suspect]
     Active Substance: CINACALCET HYDROCHLORIDE
     Indication: HYPERCALCAEMIA
     Dosage: 225 MILLIGRAM
     Route: 048
     Dates: end: 201901

REACTIONS (1)
  - Pneumonia [Fatal]

NARRATIVE: CASE EVENT DATE: 20200110
